FAERS Safety Report 5519569-9 (Version None)
Quarter: 2007Q4

REPORT INFORMATION
  Report Type: 
  Country: None (occurrence: None)
  Receive Date: 20071116
  Receipt Date: 20071108
  Transmission Date: 20080405
  Serious: Yes (Hospitalization)
  Sender: FDA-Public Use
  Company Number: PHHO2007CA18705

PATIENT
  Age: 50 Year
  Sex: Male
  Weight: 81.6 kg

DRUGS (9)
  1. AMN107 [Suspect]
     Indication: GASTROINTESTINAL STROMAL TUMOUR
     Dosage: 400 MG, BID
     Route: 048
     Dates: start: 20071001, end: 20071028
  2. COLACE [Concomitant]
  3. SENOKOT [Concomitant]
  4. SYNTHROID [Concomitant]
  5. HALDOL [Concomitant]
  6. METOCLOPRAMIDE [Concomitant]
  7. DILAUDID [Concomitant]
  8. GLEEVEC [Concomitant]
     Dates: start: 20071105
  9. PREVACID [Concomitant]

REACTIONS (3)
  - ABDOMINAL PAIN [None]
  - MALIGNANT NEOPLASM PROGRESSION [None]
  - VOMITING [None]
